FAERS Safety Report 6845023-8 (Version None)
Quarter: 2010Q3

REPORT INFORMATION
  Report Type: 
  Country: None (occurrence: None)
  Receive Date: 20100715
  Receipt Date: 20070828
  Transmission Date: 20110219
  Serious: Yes (Other)
  Sender: FDA-Public Use
  Company Number: US-PFIZER INC-2007066553

PATIENT
  Age: 53 Year
  Sex: Female

DRUGS (2)
  1. CHANTIX [Suspect]
     Indication: SMOKING CESSATION THERAPY
     Dates: start: 20070301, end: 20070825
  2. ESTROGENS [Concomitant]

REACTIONS (8)
  - DYSPNOEA [None]
  - FEELING ABNORMAL [None]
  - MOUNTAIN SICKNESS ACUTE [None]
  - NAUSEA [None]
  - RASH [None]
  - STRESS [None]
  - TOBACCO USER [None]
  - WEIGHT INCREASED [None]
